FAERS Safety Report 25979285 (Version 2)
Quarter: 2025Q4

REPORT INFORMATION
  Report Type: Spontaneous
  Country: GB (occurrence: GB)
  Receive Date: 20251030
  Receipt Date: 20251104
  Transmission Date: 20260118
  Serious: Yes (Other)
  Sender: SANDOZ
  Company Number: None

PATIENT
  Age: 76 Year
  Sex: Female
  Weight: 54 kg

DRUGS (2)
  1. CLARITHROMYCIN [Suspect]
     Active Substance: CLARITHROMYCIN
     Indication: Tooth infection
     Dosage: 500 MG, BID
     Route: 065
     Dates: start: 20251023, end: 20251025
  2. CORTISONE [Suspect]
     Active Substance: CORTISONE
     Indication: Osteoarthritis
     Dosage: UNK
     Route: 065
     Dates: start: 20251020

REACTIONS (3)
  - Pain [Not Recovered/Not Resolved]
  - Muscle spasms [Unknown]
  - Condition aggravated [Unknown]

NARRATIVE: CASE EVENT DATE: 20251023
